FAERS Safety Report 4531848-0 (Version None)
Quarter: 2004Q4

REPORT INFORMATION
  Report Type: 
  Country: None (occurrence: None)
  Receive Date: 20041220
  Receipt Date: 20041125
  Transmission Date: 20050328
  Serious: Yes (Hospitalization)
  Sender: FDA-Public Use
  Company Number: DK-BRISTOL-MYERS SQUIBB COMPANY-12777025

PATIENT
  Age: 38 Year
  Sex: Female

DRUGS (5)
  1. ABILIFY [Suspect]
     Indication: SCHIZOPHRENIA
     Route: 048
     Dates: start: 20040727, end: 20040818
  2. LEPONEX [Concomitant]
     Indication: SCHIZOPHRENIA
     Dates: start: 20030923, end: 20040811
  3. TRIATEC [Concomitant]
  4. CODEINE [Concomitant]
  5. SPIROCORT [Concomitant]
     Dosage: INHALATION

REACTIONS (8)
  - BLOOD CREATINE PHOSPHOKINASE INCREASED [None]
  - EXCITABILITY [None]
  - FRACTURE [None]
  - GRAND MAL CONVULSION [None]
  - HUMERUS FRACTURE [None]
  - LIVER FUNCTION TEST ABNORMAL [None]
  - NEUROLEPTIC MALIGNANT SYNDROME [None]
  - RESTLESSNESS [None]
